FAERS Safety Report 13106878 (Version 1)
Quarter: 2017Q1

REPORT INFORMATION
  Report Type: Spontaneous
  Country: US (occurrence: US)
  Receive Date: 20170111
  Receipt Date: 20170111
  Transmission Date: 20170428
  Serious: No
  Sender: FDA-Public Use
  Company Number: US-SIGMAPHARM LABORATORIES, LLC-2016SIG00015

PATIENT
  Age: 40 Year
  Sex: Female
  Weight: 68.27 kg

DRUGS (6)
  1. HYDROCORTISONE. [Concomitant]
     Active Substance: HYDROCORTISONE
     Route: 048
  2. LIOTHYRONINE SODIUM. [Suspect]
     Active Substance: LIOTHYRONINE SODIUM
     Indication: THYROID HORMONES DECREASED
     Dosage: 12.5 MCG, 2X/DAY
     Route: 048
     Dates: start: 201603
  3. UNSPECIFIED VITAMINS AND MINERALS [Concomitant]
  4. METHYLFOLATE [Concomitant]
  5. LIOTHYRONINE SODIUM. [Suspect]
     Active Substance: LIOTHYRONINE SODIUM
     Indication: AUTOIMMUNE THYROIDITIS
     Dosage: 25 MCG IN AM
     Route: 048
     Dates: start: 201603
  6. NALTREXONE [Concomitant]
     Active Substance: NALTREXONE
     Dosage: ^LOW DOSE^

REACTIONS (4)
  - Gastrointestinal disorder [Not Recovered/Not Resolved]
  - Insomnia [Not Recovered/Not Resolved]
  - Mood altered [Not Recovered/Not Resolved]
  - Diarrhoea [Not Recovered/Not Resolved]

NARRATIVE: CASE EVENT DATE: 201605
